FAERS Safety Report 17580244 (Version 1)
Quarter: 2020Q1

REPORT INFORMATION
  Report Type: Spontaneous
  Country: IT (occurrence: IT)
  Receive Date: 20200325
  Receipt Date: 20200325
  Transmission Date: 20200409
  Serious: Yes (Hospitalization)
  Sender: FDA-Public Use
  Company Number: IT-PFIZER INC-2020125274

PATIENT
  Sex: Male

DRUGS (17)
  1. MABTHERA [Suspect]
     Active Substance: RITUXIMAB
     Dosage: UNK
     Route: 065
     Dates: start: 20191021, end: 20191128
  2. VINCRISTINE SULFATE. [Suspect]
     Active Substance: VINCRISTINE SULFATE
     Indication: DIFFUSE LARGE B-CELL LYMPHOMA
     Dosage: UNK
     Dates: start: 20191021, end: 20191128
  3. CARBOPLATIN. [Suspect]
     Active Substance: CARBOPLATIN
     Indication: DIFFUSE LARGE B-CELL LYMPHOMA
     Dosage: UNK
     Dates: start: 20191219, end: 20200114
  4. CYTARABINE. [Concomitant]
     Active Substance: CYTARABINE
     Dosage: 50 MG, UNK
  5. DOXORUBICIN HCL [Suspect]
     Active Substance: DOXORUBICIN HYDROCHLORIDE
     Indication: DIFFUSE LARGE B-CELL LYMPHOMA
     Dosage: UNK
     Dates: start: 20191021, end: 20191128
  6. GEMCITABINE. [Concomitant]
     Active Substance: GEMCITABINE
     Dosage: 1800 MG, UNK
     Route: 042
     Dates: start: 20200205
  7. IFOSFAMIDE. [Suspect]
     Active Substance: IFOSFAMIDE
     Indication: DIFFUSE LARGE B-CELL LYMPHOMA
     Dosage: UNK
     Dates: start: 20191219, end: 20200114
  8. METHOTREXATE. [Concomitant]
     Active Substance: METHOTREXATE
     Dosage: 12.5 MG, UNK
  9. MABTHERA [Suspect]
     Active Substance: RITUXIMAB
     Indication: DIFFUSE LARGE B-CELL LYMPHOMA
     Dosage: UNK
     Dates: start: 20191219, end: 20200114
  10. DEXAMETHASONE. [Concomitant]
     Active Substance: DEXAMETHASONE
     Dosage: 4 MG, UNK
  11. OXALIPLATIN. [Concomitant]
     Active Substance: OXALIPLATIN
     Dosage: 180 MG, UNK
     Route: 042
     Dates: start: 20200205
  12. ETOPOSIDE. [Suspect]
     Active Substance: ETOPOSIDE
     Indication: DIFFUSE LARGE B-CELL LYMPHOMA
     Dosage: UNK
     Dates: start: 20191219, end: 20200114
  13. RIXATHON [Concomitant]
     Active Substance: RITUXIMAB
     Indication: DIFFUSE LARGE B-CELL LYMPHOMA
     Dosage: 680 MG, UNK
     Route: 042
     Dates: start: 20200206
  14. RIXATHON [Concomitant]
     Active Substance: RITUXIMAB
     Dosage: UNK MG, UNK
     Dates: start: 20191219, end: 20200114
  15. PREDNISONE. [Suspect]
     Active Substance: PREDNISONE
     Indication: DIFFUSE LARGE B-CELL LYMPHOMA
     Dosage: UNK
     Dates: start: 20191021, end: 20191128
  16. CYCLOPHOSPHAMIDE. [Suspect]
     Active Substance: CYCLOPHOSPHAMIDE
     Indication: DIFFUSE LARGE B-CELL LYMPHOMA
     Dosage: UNK
     Route: 065
     Dates: start: 20191021, end: 20191128
  17. DEXAMETHASONE. [Concomitant]
     Active Substance: DEXAMETHASONE
     Dosage: 16 MG, 2X/DAY Q12H
     Route: 042

REACTIONS (5)
  - Bone pain [Unknown]
  - Lymphadenopathy [Unknown]
  - Anaemia [Unknown]
  - Asthenia [Unknown]
  - Hypercalcaemia [Unknown]

NARRATIVE: CASE EVENT DATE: 20200203
